FAERS Safety Report 25727446 (Version 1)
Quarter: 2025Q3

REPORT INFORMATION
  Report Type: Spontaneous
  Country: EU (occurrence: EU)
  Receive Date: 20250826
  Receipt Date: 20250826
  Transmission Date: 20251020
  Serious: Yes (Life-Threatening, Hospitalization)
  Sender: GE HEALTHCARE
  Company Number: None

PATIENT
  Age: 80 Year
  Sex: Female
  Weight: 75 kg

DRUGS (1)
  1. VISIPAQUE [Suspect]
     Active Substance: IODIXANOL
     Indication: Diagnostic procedure
     Route: 042
     Dates: start: 20210420, end: 20210420

REACTIONS (9)
  - Urinary incontinence [Not Recovered/Not Resolved]
  - Salivary hypersecretion [Not Recovered/Not Resolved]
  - Heart rate abnormal [Not Recovered/Not Resolved]
  - Blood pressure abnormal [Not Recovered/Not Resolved]
  - Loss of consciousness [Not Recovered/Not Resolved]
  - Dyspnoea [Not Recovered/Not Resolved]
  - Hypoaesthesia [Not Recovered/Not Resolved]
  - Hypoaesthesia oral [Not Recovered/Not Resolved]
  - Dysgeusia [Not Recovered/Not Resolved]

NARRATIVE: CASE EVENT DATE: 20210420
